FAERS Safety Report 9299405 (Version 1)
Quarter: 2013Q2

REPORT INFORMATION
  Report Type: Spontaneous
  Country: GB (occurrence: GB)
  Receive Date: 20130520
  Receipt Date: 20130520
  Transmission Date: 20140414
  Serious: Yes (Other)
  Sender: FDA-Public Use
  Company Number: GB-B.I. PHARMACEUTICALS,INC./RIDGEFIELD-2013-UK-01080UK

PATIENT
  Age: 66 Year
  Sex: Female
  Weight: 119.8 kg

DRUGS (13)
  1. PRADAXA [Suspect]
     Indication: ATRIAL FIBRILLATION
     Dosage: 300 MG
     Route: 048
     Dates: start: 20130219, end: 20130304
  2. ALLOPURINOL [Concomitant]
  3. AMITRIPTYLINE [Concomitant]
  4. ATORVASTATIN [Concomitant]
  5. BISOPROLOL [Concomitant]
  6. EXENATIDE [Concomitant]
  7. FUROSEMIDE [Concomitant]
  8. GLIMEPIRIDE [Concomitant]
  9. LANSOPRAZOLE [Concomitant]
  10. METFORMIN [Concomitant]
  11. NAPROXEN [Concomitant]
  12. PARACETAMOL [Concomitant]
  13. RAMIPRIL [Concomitant]

REACTIONS (2)
  - Dysphagia [Unknown]
  - Dyspepsia [Unknown]
